FAERS Safety Report 10501377 (Version 1)
Quarter: 2014Q4

REPORT INFORMATION
  Report Type: Spontaneous
  Country: US (occurrence: None)
  Receive Date: 20141006
  Receipt Date: 20141006
  Transmission Date: 20150528
  Serious: Yes (Hospitalization)
  Sender: FDA-Public Use
  Company Number: None

PATIENT
  Age: 3 Year
  Sex: Female
  Weight: 15.7 kg

DRUGS (7)
  1. CYTARABINE. [Suspect]
     Active Substance: CYTARABINE
     Dates: end: 20140925
  2. METHOTREXATE [Suspect]
     Active Substance: METHOTREXATE
     Dates: end: 20140909
  3. CYCLOPHOSPHAMIDE. [Suspect]
     Active Substance: CYCLOPHOSPHAMIDE
     Dates: end: 20140915
  4. MERCAPTOPURINE. [Suspect]
     Active Substance: MERCAPTOPURINE
     Dosage: DOSE HELD ON 09/26/14 AND 09/27/2014; RESUMED ON 09/28/2014
     Dates: end: 20140925
  5. VINCRISTINE SULFATE. [Suspect]
     Active Substance: VINCRISTINE SULFATE
     Dates: end: 20140909
  6. ONCASPAR [Suspect]
     Active Substance: PEGASPARGASE
     Dates: end: 20140902
  7. HYDROCORTISONE. [Suspect]
     Active Substance: HYDROCORTISONE
     Dates: end: 20140909

REACTIONS (2)
  - Febrile neutropenia [None]
  - Pseudomonas infection [None]

NARRATIVE: CASE EVENT DATE: 20140925
